FAERS Safety Report 7073845-X (Version None)
Quarter: 2010Q4

REPORT INFORMATION
  Report Type: 
  Country: None (occurrence: None)
  Receive Date: 20101029
  Receipt Date: 20100824
  Transmission Date: 20110411
  Serious: No
  Sender: FDA-Public Use
  Company Number: A0877463A

PATIENT
  Age: 79 Year
  Sex: Female

DRUGS (5)
  1. ADVAIR DISKUS 100/50 [Suspect]
     Indication: ASTHMA
     Dosage: 1PUFF TWICE PER DAY
     Route: 055
     Dates: start: 20100701, end: 20100819
  2. SINGULAIR [Concomitant]
  3. EFFEXOR [Concomitant]
  4. LIPITOR [Concomitant]
  5. VITAMINS [Concomitant]

REACTIONS (10)
  - COUGH [None]
  - DYSPHONIA [None]
  - DYSPNOEA [None]
  - ILL-DEFINED DISORDER [None]
  - INCREASED VISCOSITY OF BRONCHIAL SECRETION [None]
  - LEUKOPLAKIA ORAL [None]
  - MUSCLE SPASMS [None]
  - OROPHARYNGEAL PAIN [None]
  - PRODUCTIVE COUGH [None]
  - VISION BLURRED [None]
